FAERS Safety Report 5902861-3 (Version None)
Quarter: 2008Q3

REPORT INFORMATION
  Report Type: 
  Country: None (occurrence: None)
  Receive Date: 20080930
  Receipt Date: 20080919
  Transmission Date: 20090109
  Serious: Yes (Hospitalization, Other)
  Sender: FDA-Public Use
  Company Number: CA-JNJFOC-20080604475

PATIENT
  Sex: Female
  Weight: 134 kg

DRUGS (4)
  1. REMICADE [Suspect]
     Indication: RHEUMATOID ARTHRITIS
     Route: 042
  2. SOLU-CORTEF [Concomitant]
     Indication: PREMEDICATION
  3. CELEBREX [Concomitant]
  4. CELEBREX [Concomitant]
     Indication: PSORIATIC ARTHROPATHY

REACTIONS (5)
  - CELLULITIS [None]
  - CHEST PAIN [None]
  - CHOLELITHIASIS [None]
  - MALIGNANT PLEURAL EFFUSION [None]
  - OVARIAN CANCER [None]
